FAERS Safety Report 6208269-8 (Version None)
Quarter: 2009Q2

REPORT INFORMATION
  Report Type: 
  Country: None (occurrence: None)
  Receive Date: 20090522
  Receipt Date: 20090507
  Transmission Date: 20091009
  Serious: Yes (Hospitalization)
  Sender: FDA-Public Use
  Company Number: 1000006274

PATIENT
  Age: 16 Year
  Sex: Male
  Weight: 60 kg

DRUGS (4)
  1. ESCITALOPRAM [Suspect]
     Indication: PANIC ATTACK
     Dosage: 10 MG (10 MG, 1 IN 1 D), ORAL
     Route: 048
     Dates: start: 20090418, end: 20090424
  2. IBUPROFEN TABLETS [Suspect]
     Indication: ABDOMINAL PAIN
     Dosage: 1200 MG (400 MG, 3 IN 1 D), ORAL
     Route: 048
  3. AMOXICILLIN [Concomitant]
  4. TERBUTALINE SULFATE [Concomitant]

REACTIONS (6)
  - ABDOMINAL DISCOMFORT [None]
  - ABDOMINAL PAIN [None]
  - DIARRHOEA [None]
  - GASTROINTESTINAL HAEMORRHAGE [None]
  - HAEMATEMESIS [None]
  - SELF-MEDICATION [None]
